FAERS Safety Report 15767021 (Version 1)
Quarter: 2018Q4

REPORT INFORMATION
  Report Type: Spontaneous
  Country: CA (occurrence: CA)
  Receive Date: 20181227
  Receipt Date: 20181227
  Transmission Date: 20190205
  Serious: Yes (Life-Threatening, Hospitalization, Other)
  Sender: FDA-Public Use
  Company Number: CA-PFIZER INC-2018526649

PATIENT
  Age: 60 Year
  Sex: Female

DRUGS (6)
  1. PLAQUENIL S [Concomitant]
     Active Substance: HYDROXYCHLOROQUINE SULFATE
     Indication: RHEUMATOID ARTHRITIS
     Dosage: UNK
  2. XELJANZ [Concomitant]
     Active Substance: TOFACITINIB CITRATE
     Indication: RHEUMATOID ARTHRITIS
     Dosage: 5 MG, 2X/DAY
     Route: 048
     Dates: start: 20170623
  3. NAPROXEN. [Concomitant]
     Active Substance: NAPROXEN
     Dosage: UNK
  4. MULTIVITAMINS [VITAMINS NOS] [Concomitant]
     Active Substance: VITAMINS
     Dosage: UNK
     Route: 042
  5. TRAZODONE [Concomitant]
     Active Substance: TRAZODONE HYDROCHLORIDE
     Dosage: UNK
  6. HYDROMORPHONE HYDROCHLORIDE. [Suspect]
     Active Substance: HYDROMORPHONE HYDROCHLORIDE
     Dosage: UNK

REACTIONS (25)
  - Asthenia [Unknown]
  - Tremor [Unknown]
  - Weight decreased [Unknown]
  - Dysphagia [Unknown]
  - Chest pain [Unknown]
  - Vomiting [Unknown]
  - Throat irritation [Unknown]
  - Hypotonia [Unknown]
  - Fatigue [Unknown]
  - Dyspnoea [Unknown]
  - Pericardial effusion [Recovered/Resolved]
  - Renal failure [Recovering/Resolving]
  - Hallucination [Unknown]
  - Fungal oesophagitis [Unknown]
  - Sepsis [Unknown]
  - Hyperhidrosis [Unknown]
  - Myocardial infarction [Unknown]
  - Blood glucose decreased [Unknown]
  - Pulmonary oedema [Recovered/Resolved]
  - Nerve injury [Unknown]
  - Cachexia [Unknown]
  - Lung disorder [Unknown]
  - Unresponsive to stimuli [Unknown]
  - Hypotension [Unknown]
  - Nausea [Recovering/Resolving]

NARRATIVE: CASE EVENT DATE: 201806
